FAERS Safety Report 8833329 (Version 2)
Quarter: 2013Q2

REPORT INFORMATION
  Report Type: Spontaneous
  Country: DE (occurrence: DE)
  Receive Date: 20121010
  Receipt Date: 20130403
  Transmission Date: 20140414
  Serious: Yes (Death, Life-Threatening)
  Sender: FDA-Public Use
  Company Number: DE-JNJFOC-20121002403

PATIENT
  Age: 59 Year
  Sex: Male

DRUGS (39)
  1. DIPIDOLOR [Suspect]
     Indication: PAIN
     Route: 042
     Dates: start: 20080202
  2. DUROGESIC [Suspect]
     Indication: PAIN
     Route: 062
     Dates: start: 20071202
  3. FLUCONAZOLE [Suspect]
     Indication: ARTHRITIS
     Route: 042
     Dates: start: 20080114, end: 20080128
  4. HYDROCORTISONE SODIUM SUCCINATE [Suspect]
     Indication: SEPSIS
     Route: 042
     Dates: start: 20080129, end: 20080129
  5. POTASSIUM CHLORIDE [Suspect]
     Indication: ELECTROLYTE SUBSTITUTION THERAPY
     Route: 042
     Dates: start: 20080127, end: 20080128
  6. POTASSIUM CHLORIDE [Suspect]
     Indication: ELECTROLYTE SUBSTITUTION THERAPY
     Route: 042
     Dates: start: 20080130
  7. GLUCOSE [Suspect]
     Indication: ELECTROLYTE SUBSTITUTION THERAPY
     Route: 042
     Dates: start: 20080204
  8. GLUCOSE [Suspect]
     Indication: ELECTROLYTE SUBSTITUTION THERAPY
     Route: 042
     Dates: start: 20080124, end: 20080129
  9. HEPARIN [Suspect]
     Indication: THROMBOSIS PROPHYLAXIS
     Route: 042
     Dates: start: 20080117
  10. FURORESE [Suspect]
     Indication: POLYURIA
     Route: 042
     Dates: start: 20080117, end: 20080131
  11. NORMOFUNDIN [Suspect]
     Indication: ELECTROLYTE SUBSTITUTION THERAPY
     Dates: start: 20100202
  12. BELOC ZOK [Suspect]
     Indication: HYPERTENSION
     Route: 048
     Dates: start: 20080127
  13. METOPROLOL TARTRATE [Suspect]
     Indication: HYPERTENSION
     Route: 042
     Dates: start: 20080126, end: 20080127
  14. DORMICUM [Suspect]
     Indication: RESTLESSNESS
     Dosage: 2X1 MG
     Route: 042
     Dates: start: 20080201
  15. DORMICUM [Suspect]
     Indication: RESTLESSNESS
     Dosage: 3X2 MG
     Route: 042
     Dates: start: 20080130, end: 20080130
  16. LORAZEPAM [Suspect]
     Indication: PRODUCT USED FOR UNKNOWN INDICATION
     Route: 048
     Dates: start: 20080123, end: 20080124
  17. NEXIUM [Suspect]
     Indication: PROPHYLAXIS AGAINST GASTROINTESTINAL ULCER
     Route: 048
     Dates: start: 20080120
  18. AKRINOR [Suspect]
     Indication: HYPOTENSION
     Route: 042
  19. AKRINOR [Suspect]
     Indication: HYPOTENSION
     Route: 042
     Dates: start: 20080123, end: 20080124
  20. PROPOFOL [Suspect]
     Indication: STUPOR
     Route: 042
     Dates: start: 20080123, end: 20080127
  21. ULTIVA [Suspect]
     Indication: STUPOR
     Route: 042
     Dates: start: 20080123, end: 20080127
  22. GELAFUNDIN [Suspect]
     Indication: ELECTROLYTE SUBSTITUTION THERAPY
     Route: 042
     Dates: start: 20080204
  23. JONOSTERIL S [Suspect]
     Indication: ELECTROLYTE SUBSTITUTION THERAPY
     Route: 042
     Dates: start: 20080124, end: 20080131
  24. DULCOLAX [Suspect]
     Indication: CONSTIPATION
     Route: 054
     Dates: start: 20080127, end: 20080127
  25. INSULIN [Suspect]
     Indication: HYPERGLYCAEMIA
     Route: 042
     Dates: start: 20080128, end: 20080203
  26. L-THYROXIN [Suspect]
     Indication: HYPOTHYROIDISM
     Route: 048
     Dates: start: 20080129
  27. L-THYROXIN [Suspect]
     Indication: HYPOTHYROIDISM
     Route: 048
  28. LYRICA [Suspect]
     Indication: DEPRESSION
     Route: 048
     Dates: start: 20080128, end: 20080201
  29. TAZOBAC [Suspect]
     Indication: ARTHRITIS
     Route: 042
     Dates: end: 20080131
  30. TAZOBAC [Suspect]
     Indication: ARTHRITIS
     Route: 042
     Dates: start: 20071228
  31. CIPROFLOXACIN [Suspect]
     Indication: ARTHRITIS
     Route: 042
  32. CIPROFLOXACIN [Suspect]
     Indication: ARTHRITIS
     Route: 042
     Dates: start: 20080114
  33. CALCIUM CHLORIDE [Suspect]
     Indication: ELECTROLYTE SUBSTITUTION THERAPY
     Route: 042
     Dates: start: 20080127
  34. SODIUM CHLORIDE [Suspect]
     Indication: ELECTROLYTE SUBSTITUTION THERAPY
     Route: 042
     Dates: start: 20080203
  35. SODIUM CHLORIDE [Suspect]
     Indication: ELECTROLYTE SUBSTITUTION THERAPY
     Route: 042
     Dates: start: 20080109, end: 20080124
  36. KETAMINE [Suspect]
     Indication: STUPOR
     Route: 042
     Dates: start: 20080201
  37. KETAMINE [Suspect]
     Indication: STUPOR
     Route: 042
     Dates: start: 20080124
  38. KETAMINE [Suspect]
     Indication: STUPOR
     Route: 042
     Dates: start: 20080128
  39. KETAMINE [Suspect]
     Indication: STUPOR
     Route: 042
     Dates: start: 20080130

REACTIONS (2)
  - Stevens-Johnson syndrome [Fatal]
  - Toxic epidermal necrolysis [Fatal]
